FAERS Safety Report 8819526 (Version 1)
Quarter: 2012Q4

REPORT INFORMATION
  Report Type: 
  Country: GB (occurrence: GB)
  Receive Date: 20120930
  Receipt Date: 20120930
  Transmission Date: 20130627
  Serious: Yes (Other)
  Sender: FDA-Public Use
  Company Number: GB-MYLANLABS-2012S1019395

PATIENT
  Weight: 57.1 kg

DRUGS (2)
  1. LOSARTAN [Suspect]
     Indication: HYPERTENSION
     Route: 048
     Dates: start: 20120815, end: 20120901
  2. FELODIPINE [Concomitant]
     Indication: HYPERTENSION
     Route: 048
     Dates: start: 20111005

REACTIONS (3)
  - Chapped lips [Recovered/Resolved]
  - Lip swelling [Recovered/Resolved]
  - Oedema mouth [Recovered/Resolved]
